FAERS Safety Report 7457022-6 (Version None)
Quarter: 2011Q1

REPORT INFORMATION
  Report Type: 
  Country: None (occurrence: None)
  Receive Date: 20110302
  Receipt Date: 20110120
  Transmission Date: 20110831
  Serious: No
  Sender: FDA-Public Use
  Company Number: 023966

PATIENT
  Sex: Male
  Weight: 79.4 kg

DRUGS (3)
  1. CIMZIA [Suspect]
     Indication: CROHN'S DISEASE
     Dosage: (400 MG 1X/MONTH SUBCUTANEOUS)
     Route: 058
     Dates: start: 20100823
  2. FEXOFENADINE [Concomitant]
  3. PENTASA [Concomitant]

REACTIONS (6)
  - FREQUENT BOWEL MOVEMENTS [None]
  - CROHN'S DISEASE [None]
  - FEELING ABNORMAL [None]
  - ABDOMINAL PAIN [None]
  - DRUG INEFFECTIVE [None]
  - FATIGUE [None]
